FAERS Safety Report 12353397 (Version 1)
Quarter: 2016Q2

REPORT INFORMATION
  Report Type: Report from Study
  Country: BR (occurrence: BR)
  Receive Date: 20160510
  Receipt Date: 20160510
  Transmission Date: 20160815
  Serious: Yes (Other)
  Sender: FDA-Public Use
  Company Number: PHHY2016BR063878

PATIENT
  Sex: Male
  Weight: 43.3 kg

DRUGS (1)
  1. EXELON PATCH [Suspect]
     Active Substance: RIVASTIGMINE
     Indication: MEMORY IMPAIRMENT
     Dosage: 4.6 MG, (PATCH 5 CM2), QD
     Route: 062

REACTIONS (2)
  - Asthenia [Recovering/Resolving]
  - Decreased appetite [Recovering/Resolving]
